FAERS Safety Report 15288999 (Version 42)
Quarter: 2021Q3

REPORT INFORMATION
  Report Type: Other
  Country: DE (occurrence: DE)
  Receive Date: 20180817
  Receipt Date: 20210706
  Transmission Date: 20211014
  Serious: Yes (Life-Threatening, Hospitalization, Other)
  Sender: FDA-Public Use
  Company Number: DE-ROCHE-2157763

PATIENT
  Age: 65 Year
  Sex: Male
  Weight: 80 kg

DRUGS (22)
  1. CLEXANE [Concomitant]
     Active Substance: ENOXAPARIN SODIUM
     Indication: THROMBOSIS PROPHYLAXIS
     Route: 058
     Dates: start: 201807, end: 201808
  2. RAMIPRIL. [Concomitant]
     Active Substance: RAMIPRIL
     Indication: HYPERTENSION
     Route: 048
     Dates: start: 201807
  3. VEMURAFENIB. [Suspect]
     Active Substance: VEMURAFENIB
     Route: 048
     Dates: start: 20180823, end: 20180823
  4. VEMURAFENIB. [Suspect]
     Active Substance: VEMURAFENIB
     Route: 048
     Dates: start: 20181016, end: 20181023
  5. DELIX [Concomitant]
     Indication: HYPERTENSION
     Route: 048
     Dates: start: 20171115, end: 20180718
  6. PANTOPRAZOLE [Concomitant]
     Active Substance: PANTOPRAZOLE
     Indication: PROPHYLAXIS AGAINST GASTROINTESTINAL ULCER
     Route: 048
     Dates: start: 20180718, end: 20181030
  7. METHYLPREDNISOLONE. [Suspect]
     Active Substance: METHYLPREDNISOLONE
     Route: 048
     Dates: start: 20180812, end: 20180814
  8. AMLODIPINE [Concomitant]
     Active Substance: AMLODIPINE BESYLATE
     Route: 048
     Dates: start: 201807
  9. COBIMETINIB. [Suspect]
     Active Substance: COBIMETINIB
     Indication: MALIGNANT MELANOMA
     Route: 048
     Dates: start: 20180707, end: 20180716
  10. COBIMETINIB. [Suspect]
     Active Substance: COBIMETINIB
     Route: 048
     Dates: start: 20180709, end: 20180717
  11. METHYLPREDNISOLONE. [Suspect]
     Active Substance: METHYLPREDNISOLONE
     Route: 048
     Dates: start: 20180815, end: 20180817
  12. METHYLPREDNISOLONE. [Suspect]
     Active Substance: METHYLPREDNISOLONE
     Route: 041
     Dates: start: 201807, end: 20180801
  13. HEPARIN [Concomitant]
     Active Substance: HEPARIN SODIUM
     Indication: THROMBOSIS PROPHYLAXIS
     Route: 058
     Dates: start: 201807, end: 201807
  14. IRENAT [Concomitant]
     Active Substance: SODIUM PERCHLORATE
     Dosage: DROP?COMPUTED TOMOGRAPHY WITH CONTRAST AGENT
     Route: 048
     Dates: start: 20180827, end: 20180830
  15. VEMURAFENIB. [Suspect]
     Active Substance: VEMURAFENIB
     Indication: MALIGNANT MELANOMA
     Route: 048
     Dates: start: 20180707, end: 20180716
  16. IRENAT [Concomitant]
     Active Substance: SODIUM PERCHLORATE
     Dosage: DROP?COMPUTED TOMOGRAPHY WITH CONTRAST AGENT
     Route: 048
     Dates: start: 20190121, end: 20190124
  17. VESIKUR [Concomitant]
     Active Substance: SOLIFENACIN SUCCINATE
     Indication: URGE INCONTINENCE
     Route: 048
     Dates: start: 20190121, end: 20190123
  18. METHYLPREDNISOLONE. [Suspect]
     Active Substance: METHYLPREDNISOLONE
     Indication: DERMATITIS ALLERGIC
     Route: 041
     Dates: start: 20180719, end: 201807
  19. METHYLPREDNISOLONE. [Suspect]
     Active Substance: METHYLPREDNISOLONE
     Route: 040
     Dates: start: 20180718, end: 20180718
  20. METHYLPREDNISOLONE. [Suspect]
     Active Substance: METHYLPREDNISOLONE
     Route: 048
     Dates: start: 20180802, end: 20180802
  21. AMLODIPINE [Concomitant]
     Active Substance: AMLODIPINE BESYLATE
     Indication: HYPERTENSION
     Route: 048
     Dates: start: 20171115, end: 20180718
  22. DELIX [Concomitant]
     Route: 048
     Dates: start: 20180719

REACTIONS (39)
  - Dermatitis allergic [Recovered/Resolved]
  - Escherichia urinary tract infection [Recovered/Resolved]
  - Acute kidney injury [Recovered/Resolved]
  - Skin candida [Recovered/Resolved]
  - Dermatitis infected [Recovered/Resolved]
  - Balanoposthitis [Recovered/Resolved]
  - Oral candidiasis [Recovered/Resolved]
  - Diarrhoea [Recovered/Resolved]
  - Hypomagnesaemia [Unknown]
  - Aspergillus infection [Recovered/Resolved]
  - Vomiting [Recovered/Resolved]
  - Laryngitis [Recovered/Resolved]
  - Hyperthyroidism [Not Recovered/Not Resolved]
  - Malaise [Recovered/Resolved]
  - Blood creatinine increased [Recovered/Resolved]
  - Staphylococcus test positive [Recovered/Resolved]
  - Hypokalaemia [Recovered/Resolved]
  - Urinary tract infection enterococcal [Recovered/Resolved with Sequelae]
  - Hypocalcaemia [Recovering/Resolving]
  - Haematuria [Recovered/Resolved]
  - Leukocyturia [Recovered/Resolved]
  - Myalgia [Recovered/Resolved]
  - Urinary tract disorder [Recovered/Resolved]
  - Pneumonia [Recovering/Resolving]
  - Rash [Recovered/Resolved]
  - Blister [Recovered/Resolved]
  - Sunburn [Recovered/Resolved]
  - Pyrexia [Recovered/Resolved]
  - Rash [Recovered/Resolved]
  - Pruritus [Recovered/Resolved]
  - Skin papilloma [Recovered/Resolved]
  - Cough [Recovered/Resolved]
  - Rash [Recovered/Resolved]
  - Hypocalcaemia [Recovered/Resolved]
  - Urinary tract disorder [Recovered/Resolved]
  - Escherichia infection [Recovered/Resolved]
  - Chills [Recovered/Resolved]
  - Oral bacterial infection [Recovered/Resolved]
  - Pyrexia [Recovered/Resolved]

NARRATIVE: CASE EVENT DATE: 20180712
